FAERS Safety Report 8240076-7 (Version None)
Quarter: 2012Q1

REPORT INFORMATION
  Report Type: 
  Country: None (occurrence: None)
  Receive Date: 20120328
  Receipt Date: 20120323
  Transmission Date: 20120608
  Serious: No
  Sender: FDA-Public Use
  Company Number: US-PFIZER INC-2012055933

PATIENT
  Sex: Female
  Weight: 81.633 kg

DRUGS (5)
  1. SERTRALINE [Concomitant]
     Dosage: 100 MG, 1X/DAY
  2. IBUPROFEN [Concomitant]
     Dosage: 600 MG, 4X/DAY
  3. FLEXERIL [Concomitant]
     Dosage: 10 MG, 3X/DAY
  4. LIPITOR [Suspect]
     Indication: BLOOD CHOLESTEROL INCREASED
     Dosage: 40 MG, 1X/DAY
     Route: 048
     Dates: start: 20111017, end: 20120220
  5. TRIAMTERENE AND HYDROCHLOROTHIAZIDE [Concomitant]
     Dosage: 75/50 1/2 EVERY DAY

REACTIONS (2)
  - MALAISE [None]
  - NASOPHARYNGITIS [None]
